FAERS Safety Report 8058654-7 (Version None)
Quarter: 2012Q1

REPORT INFORMATION
  Report Type: 
  Country: None (occurrence: None)
  Receive Date: 20120119
  Receipt Date: 20120119
  Transmission Date: 20120608
  Serious: Yes (Hospitalization)
  Sender: FDA-Public Use
  Company Number: None

PATIENT
  Age: 81 Year
  Sex: Female
  Weight: 68.2 kg

DRUGS (12)
  1. TOPROL-XL [Concomitant]
  2. PREDNISONE [Concomitant]
  3. OXYCONTIN [Concomitant]
  4. GLYBURIDE [Concomitant]
  5. CENTRUM [Concomitant]
  6. CYMBALTA [Concomitant]
  7. BUMEX [Concomitant]
  8. POTASSIUM CHLORIDE [Concomitant]
  9. SEPTRA [Suspect]
     Indication: STAPHYLOCOCCAL INFECTION
     Dosage: PO RECENT
     Route: 048
  10. SIMVASTATIN [Concomitant]
  11. NEURONTIN [Concomitant]
  12. AMBIEN [Concomitant]

REACTIONS (2)
  - RENAL FAILURE [None]
  - THROMBOCYTOPENIA [None]
